FAERS Safety Report 6709671-8 (Version None)
Quarter: 2010Q2

REPORT INFORMATION
  Report Type: 
  Country: None (occurrence: None)
  Receive Date: 20100503
  Receipt Date: 20100503
  Transmission Date: 20101027
  Serious: Yes (Other)
  Sender: FDA-Public Use
  Company Number: None

PATIENT
  Age: 26 Month
  Sex: Female
  Weight: 14.5151 kg

DRUGS (1)
  1. TYLENOL INFANT'S DROPS 80 PER 0.8ML MCNEIL CONSUMER HEALTHCARE [Suspect]
     Indication: PYREXIA
     Dosage: 1.6 ML 2 PER DAY PO
     Route: 048
     Dates: start: 20100423, end: 20100424

REACTIONS (2)
  - PRODUCT QUALITY ISSUE [None]
  - RASH [None]
